FAERS Safety Report 9425162 (Version 1)
Quarter: 2013Q3

REPORT INFORMATION
  Report Type: Spontaneous
  Country: AT (occurrence: AT)
  Receive Date: 20130729
  Receipt Date: 20130729
  Transmission Date: 20140515
  Serious: Yes (Hospitalization)
  Sender: FDA-Public Use
  Company Number: AT-JNJFOC-20130713704

PATIENT
  Age: 52 Year
  Sex: Female
  Weight: 88 kg

DRUGS (2)
  1. REMICADE [Suspect]
     Indication: PSORIATIC ARTHROPATHY
     Route: 042
  2. EBETREXAT [Concomitant]
     Indication: PSORIATIC ARTHROPATHY
     Route: 065

REACTIONS (2)
  - Radius fracture [Recovered/Resolved]
  - Ulna fracture [Recovered/Resolved]
